FAERS Safety Report 22368761 (Version 1)
Quarter: 2023Q2

REPORT INFORMATION
  Report Type: Spontaneous
  Country: CA (occurrence: CA)
  Receive Date: 20230525
  Receipt Date: 20230525
  Transmission Date: 20230722
  Serious: Yes (Other)
  Sender: FDA-Public Use
  Company Number: CA-FreseniusKabi-FK202306726

PATIENT
  Age: 38 Year
  Sex: Female

DRUGS (15)
  1. LEVOTHYROXINE SODIUM [Suspect]
     Active Substance: LEVOTHYROXINE SODIUM
     Indication: Product used for unknown indication
     Route: 065
  2. OMALIZUMAB [Suspect]
     Active Substance: OMALIZUMAB
     Indication: Chronic spontaneous urticaria
     Dosage: 4 REGIMEN WITH THE SAME INFORMATION
     Route: 058
  3. OMALIZUMAB [Suspect]
     Active Substance: OMALIZUMAB
     Dosage: 2 REGIMEN WITH THE SAME INFORMATION
     Route: 058
  4. OMALIZUMAB [Suspect]
     Active Substance: OMALIZUMAB
     Route: 058
  5. OMALIZUMAB [Suspect]
     Active Substance: OMALIZUMAB
     Route: 058
  6. ACRIVASTINE [Concomitant]
     Active Substance: ACRIVASTINE
     Indication: Chronic spontaneous urticaria
     Route: 048
  7. EBASTINE [Concomitant]
     Active Substance: EBASTINE
     Indication: Product used for unknown indication
     Route: 065
  8. ALLEGRA [Concomitant]
     Active Substance: FEXOFENADINE HYDROCHLORIDE
     Indication: Product used for unknown indication
     Route: 065
  9. BILASTINE [Concomitant]
     Active Substance: BILASTINE
     Indication: Product used for unknown indication
     Route: 048
  10. CLARITIN [Concomitant]
     Active Substance: LORATADINE
     Indication: Chronic spontaneous urticaria
     Route: 065
  11. PREDNISONE [Concomitant]
     Active Substance: PREDNISONE
     Indication: Product used for unknown indication
     Route: 048
  12. REACTINE [Concomitant]
     Indication: Product used for unknown indication
     Route: 065
  13. SINGULAIR [Concomitant]
     Active Substance: MONTELUKAST SODIUM
     Indication: Chronic spontaneous urticaria
     Route: 065
  14. ZENHALE [Concomitant]
     Active Substance: FORMOTEROL FUMARATE\MOMETASONE FUROATE
     Indication: Product used for unknown indication
     Route: 065
  15. ZENHALE [Concomitant]
     Active Substance: FORMOTEROL FUMARATE\MOMETASONE FUROATE

REACTIONS (23)
  - Anaphylactic shock [Unknown]
  - Asthma [Unknown]
  - Balance disorder [Unknown]
  - Blister [Unknown]
  - Chest discomfort [Unknown]
  - Dizziness [Unknown]
  - Ear discomfort [Unknown]
  - Head discomfort [Unknown]
  - Hypoaesthesia [Unknown]
  - Inappropriate schedule of product administration [Unknown]
  - Paraesthesia [Unknown]
  - Product availability issue [Unknown]
  - Product dose omission issue [Unknown]
  - Shock [Unknown]
  - Dyspnoea [Unknown]
  - Diarrhoea [Unknown]
  - Chronic spontaneous urticaria [Unknown]
  - Urticaria [Unknown]
  - Fatigue [Unknown]
  - Nausea [Unknown]
  - Malaise [Unknown]
  - Abdominal pain [Unknown]
  - Drug ineffective [Unknown]
